FAERS Safety Report 14170579 (Version 1)
Quarter: 2017Q4

REPORT INFORMATION
  Report Type: Spontaneous
  Country: IT (occurrence: IT)
  Receive Date: 20171108
  Receipt Date: 20171108
  Transmission Date: 20180321
  Serious: Yes (Hospitalization)
  Sender: FDA-Public Use
  Company Number: IT-JNJFOC-20171105504

PATIENT
  Age: 63 Year
  Sex: Male

DRUGS (1)
  1. XARELTO [Suspect]
     Active Substance: RIVAROXABAN
     Indication: EMBOLISM
     Route: 048
     Dates: start: 20160101, end: 20170114

REACTIONS (5)
  - Cerebral haemorrhage [Unknown]
  - Vomiting [Unknown]
  - Loss of consciousness [Unknown]
  - Intracranial aneurysm [Unknown]
  - Malaise [Unknown]

NARRATIVE: CASE EVENT DATE: 20170112
